FAERS Safety Report 5001983-1 (Version None)
Quarter: 2006Q2

REPORT INFORMATION
  Report Type: 
  Country: None (occurrence: None)
  Receive Date: 20060515
  Receipt Date: 20060327
  Transmission Date: 20061013
  Serious: Yes (Hospitalization)
  Sender: FDA-Public Use
  Company Number: FR-ROCHE-441837

PATIENT
  Age: 55 Year
  Sex: Male
  Weight: 70 kg

DRUGS (4)
  1. CAPECITABINE [Suspect]
     Dosage: GIVEN ON DAYS 1 TO 7 EVERY TWO WEEKS
     Route: 048
     Dates: start: 20060105
  2. AVASTIN [Suspect]
     Route: 042
     Dates: start: 20060105
  3. OXALIPLATIN [Suspect]
     Route: 042
     Dates: start: 20060105
  4. OXYCONTIN [Suspect]
     Route: 065

REACTIONS (3)
  - DIARRHOEA [None]
  - DIZZINESS [None]
  - HAEMORRHOIDS [None]
